FAERS Safety Report 4458476-X (Version None)
Quarter: 2004Q3

REPORT INFORMATION
  Report Type: 
  Country: None (occurrence: None)
  Receive Date: 20040922
  Receipt Date: 20030827
  Transmission Date: 20050211
  Serious: Yes (Hospitalization, Other)
  Sender: FDA-Public Use
  Company Number: US-SHR-03-001823

PATIENT
  Age: 51 Year
  Sex: Female
  Weight: 70.3 kg

DRUGS (9)
  1. BETASERON [Suspect]
     Indication: MULTIPLE SCLEROSIS
     Dosage: 8 MIU, EVERY 2D, SUBCUTANEOUS
     Route: 058
     Dates: start: 20000927, end: 20020801
  2. PREMARIN [Concomitant]
  3. SYNTHROID [Concomitant]
  4. ZANAFLEX [Concomitant]
  5. BACLOFEN [Concomitant]
  6. VIOXX [Concomitant]
  7. AMANTADINE (AMANTADINE) [Concomitant]
  8. CALCIUM (CALCIUM) [Concomitant]
  9. MULTIVITE (RETINOL) [Concomitant]

REACTIONS (8)
  - ANAEMIA [None]
  - HYPERTENSION [None]
  - INJECTION SITE ULCER [None]
  - LEUKOPENIA [None]
  - NON-SMALL CELL LUNG CANCER [None]
  - PNEUMONIA [None]
  - PNEUMOTHORAX [None]
  - SUBCUTANEOUS EMPHYSEMA [None]
